FAERS Safety Report 6752129-0 (Version None)
Quarter: 2010Q2

REPORT INFORMATION
  Report Type: 
  Country: None (occurrence: None)
  Receive Date: 20100601
  Receipt Date: 20100601
  Transmission Date: 20101027
  Serious: Yes (Other)
  Sender: FDA-Public Use
  Company Number: None

PATIENT
  Sex: Male
  Weight: 75.7507 kg

DRUGS (7)
  1. RIBAVIRIN [Suspect]
     Indication: HEPATITIS C
     Dosage: 1000MG DAILY PO
     Route: 048
     Dates: start: 20100405, end: 20100528
  2. PEG-INTRON [Concomitant]
  3. KAPIDEX [Concomitant]
  4. NIFEDIPINE [Concomitant]
  5. LOVAZA [Concomitant]
  6. ZANTAC [Concomitant]
  7. M.V.I. [Concomitant]

REACTIONS (1)
  - MEDICATION ERROR [None]
